FAERS Safety Report 4982273-X (Version None)
Quarter: 2006Q2

REPORT INFORMATION
  Report Type: 
  Country: None (occurrence: None)
  Receive Date: 20060419
  Receipt Date: 20060403
  Transmission Date: 20061013
  Serious: Yes (Hospitalization)
  Sender: FDA-Public Use
  Company Number: 2006-00864

PATIENT
  Age: 77 Year
  Sex: Male

DRUGS (14)
  1. VELCADE [Suspect]
     Indication: B-CELL LYMPHOMA
     Dosage: 1.30 MG/M2, IV DRIP
     Route: 041
     Dates: start: 20060209
  2. RITUXAN [Suspect]
     Indication: B-CELL LYMPHOMA
     Dosage: 375.00 MG/M2
     Dates: start: 20060209
  3. PREDNISONE TAB [Suspect]
     Indication: B-CELL LYMPHOMA
     Dosage: 100.00 MG, ORAL
     Route: 048
     Dates: start: 20060209
  4. VINCRISTINE [Suspect]
     Indication: B-CELL LYMPHOMA
     Dosage: 1.40 MG/M2
     Dates: start: 20060209
  5. DOXORUBICIN (DOXORUBICIN) [Suspect]
     Indication: B-CELL LYMPHOMA
     Dosage: 50.00 MG/M2
     Dates: start: 20060209
  6. CYCLOPHOSPHAMIDE [Suspect]
     Indication: B-CELL LYMPHOMA
     Dosage: 750.00 MG/M2, INTRAVENOUS
     Route: 042
     Dates: start: 20060209
  7. TOPROL-XL [Concomitant]
  8. COZAAR [Concomitant]
  9. GLUCOSAMINE [Concomitant]
  10. TRICOR [Concomitant]
  11. HYTRIN [Concomitant]
  12. PROSCAR [Concomitant]
  13. COUMADIN [Concomitant]
  14. KEPPRA [Concomitant]

REACTIONS (2)
  - SUPRAVENTRICULAR TACHYCARDIA [None]
  - THROMBOCYTOPENIA [None]
